FAERS Safety Report 7484450-5 (Version None)
Quarter: 2011Q2

REPORT INFORMATION
  Report Type: 
  Country: None (occurrence: None)
  Receive Date: 20110413
  Receipt Date: 20110420
  Transmission Date: 20111010
  Serious: Yes (Hospitalization)
  Sender: FDA-Public Use
  Company Number: 2010027240

PATIENT
  Sex: Female
  Weight: 48.5349 kg

DRUGS (21)
  1. RITUXAN [Concomitant]
  2. QVAR [Concomitant]
  3. ACIPHEX [Concomitant]
  4. NASONEX [Concomitant]
  5. VIVAGLOBIN [Suspect]
     Indication: IMMUNODEFICIENCY
     Dosage: 9.6 G 1X/WEEK, 20L VIAL: 9.6 GM (60 ML) WEEKLY IN 4 SIGTES OVER 90 MIN. SUBCUTANEOUS
     Route: 058
     Dates: start: 20110305
  6. VIVAGLOBIN [Suspect]
     Indication: IMMUNODEFICIENCY
     Dosage: 9.6 G 1X/WEEK, 20L VIAL: 9.6 GM (60 ML) WEEKLY IN 4 SIGTES OVER 90 MIN. SUBCUTANEOUS
     Route: 058
     Dates: start: 20100201
  7. VIVAGLOBIN [Suspect]
  8. TRENDA (BENDAMUSTINE) [Concomitant]
  9. VERAMYST (FLUTICASONE) [Concomitant]
  10. NEXIUM [Concomitant]
  11. ZANTAC [Concomitant]
  12. ZEGERID (OMEPRAZOLE SODIUM) [Concomitant]
  13. CARAFATE [Concomitant]
  14. ALBUTEROL [Concomitant]
  15. XOPENEX [Concomitant]
  16. PATANASE (OLOPATADINE) [Concomitant]
  17. CLARITIN [Concomitant]
  18. DOMPERIDONE (DOMPERIDONE) [Concomitant]
  19. PROVENTIL [Concomitant]
  20. HYDROCORTONE [Concomitant]
  21. SYNTHROID [Concomitant]

REACTIONS (6)
  - SINUSITIS [None]
  - INFUSION SITE PAIN [None]
  - ASTHMA [None]
  - INFUSION SITE ERYTHEMA [None]
  - INFUSION SITE RASH [None]
  - BRONCHITIS [None]
